FAERS Safety Report 8555109 (Version 4)
Quarter: 2013Q3

REPORT INFORMATION
  Report Type: Spontaneous
  Country: US (occurrence: US)
  Receive Date: 20120510
  Receipt Date: 20130808
  Transmission Date: 20140515
  Serious: Yes (Other)
  Sender: FDA-Public Use
  Company Number: PHEH2012US009353

PATIENT
  Age: 63 Year
  Sex: Female

DRUGS (12)
  1. GILENYA [Suspect]
     Indication: RELAPSING-REMITTING MULTIPLE SCLEROSIS
     Dosage: 0.5 MG, QD
     Route: 048
     Dates: start: 201103, end: 201204
  2. NORVASC [Concomitant]
     Dosage: 1 DF, QD
     Route: 048
     Dates: start: 20110824
  3. RESTASIS [Concomitant]
     Dosage: 1 DRP IN BOTH EYES, BID
  4. ENABLEX [Concomitant]
     Dosage: 1 DF, QD
     Route: 048
  5. ARTHROTEC [Concomitant]
     Dosage: 75-0.2 MG
     Route: 048
  6. VIBRA-TABS [Concomitant]
     Dosage: 1 DF, BID
     Route: 048
  7. PREMARIN [Concomitant]
     Dosage: 1 DF, QD
     Route: 048
  8. ARTIFICIAL TEARS [Concomitant]
     Dosage: 1 DRP INTO BOTH EYES, BID
  9. CYANOCOBALAMIN [Concomitant]
     Dosage: 1 DF, QD
     Route: 048
  10. CALCIUM WITH VITAMIN D [Concomitant]
     Dosage: 1 DF, QD
     Route: 048
  11. FERROUS SULPHATE [Concomitant]
     Dosage: 325 MG, QD, WITH BREAKFAST
     Route: 048
  12. ZANAFLEX [Concomitant]
     Dosage: 1 MG, QD
     Route: 048

REACTIONS (5)
  - Optic atrophy [Not Recovered/Not Resolved]
  - Balance disorder [Unknown]
  - Visual acuity reduced [Unknown]
  - Tremor [Unknown]
  - Concomitant disease aggravated [Unknown]
